FAERS Safety Report 4821337-8 (Version None)
Quarter: 2005Q4

REPORT INFORMATION
  Report Type: 
  Country: None (occurrence: None)
  Receive Date: 20051107
  Receipt Date: 20050909
  Transmission Date: 20060501
  Serious: No
  Sender: FDA-Public Use
  Company Number: US-GLAXOSMITHKLINE-A0573573A

PATIENT
  Age: 54 Year
  Sex: Female

DRUGS (1)
  1. AVANDAMET [Suspect]
     Dosage: 1TAB TWICE PER DAY
     Route: 048
     Dates: start: 20050201, end: 20050801

REACTIONS (2)
  - CONFUSIONAL STATE [None]
  - INSOMNIA [None]
